FAERS Safety Report 19933375 (Version 1)
Quarter: 2021Q4

REPORT INFORMATION
  Report Type: Spontaneous
  Country: CA (occurrence: CA)
  Receive Date: 20211008
  Receipt Date: 20211008
  Transmission Date: 20220304
  Serious: Yes (Other)
  Sender: FDA-Public Use
  Company Number: CA-IGSA-BIG0016221

PATIENT
  Sex: Female

DRUGS (14)
  1. PROLASTIN-C [Suspect]
     Active Substance: .ALPHA.1-PROTEINASE INHIBITOR HUMAN
     Indication: Alpha-1 antitrypsin deficiency
     Dosage: 4800 MILLIGRAM, Q.WK.
     Route: 042
     Dates: start: 20161201
  2. ALENDRONATE [Concomitant]
     Active Substance: ALENDRONATE SODIUM
  3. AZATHIOPRINE [Concomitant]
     Active Substance: AZATHIOPRINE
  4. AZITHROMYCIN ANHYDROUS [Concomitant]
     Active Substance: AZITHROMYCIN ANHYDROUS
  5. BUDESONIDE [Concomitant]
     Active Substance: BUDESONIDE
  6. CALCIUM [Concomitant]
     Active Substance: CALCIUM
  7. CITALOPRAM [Concomitant]
     Active Substance: CITALOPRAM HYDROBROMIDE
  8. ARANESP [Concomitant]
     Active Substance: DARBEPOETIN ALFA
  9. METOPROLOL [Concomitant]
     Active Substance: METOPROLOL
  10. VITAMINS [Concomitant]
     Active Substance: VITAMINS
  11. PANTOPRAZOLE [Concomitant]
     Active Substance: PANTOPRAZOLE
  12. PREDNISONE [Concomitant]
     Active Substance: PREDNISONE
  13. VITAMIN D NOS [Concomitant]
     Active Substance: VITAMIN D NOS
  14. TACROLIM [Concomitant]

REACTIONS (1)
  - Diverticulitis [Unknown]
